FAERS Safety Report 5323966-4 (Version None)
Quarter: 2007Q2

REPORT INFORMATION
  Report Type: 
  Country: None (occurrence: None)
  Receive Date: 20070509
  Receipt Date: 20070509
  Transmission Date: 20071010
  Serious: Yes (Other)
  Sender: FDA-Public Use
  Company Number: None

PATIENT
  Age: 79 Year
  Sex: Female
  Weight: 60.782 kg

DRUGS (1)
  1. ALLERX [Suspect]
     Indication: MIDDLE EAR EFFUSION
     Dosage: ONE PILL MORNING AND NIGHT
     Dates: start: 20070131, end: 20070205

REACTIONS (1)
  - POLYMYALGIA RHEUMATICA [None]
